FAERS Safety Report 8558398-9 (Version None)
Quarter: 2012Q3

REPORT INFORMATION
  Report Type: 
  Country: None (occurrence: None)
  Receive Date: 20120801
  Receipt Date: 20120628
  Transmission Date: 20120928
  Serious: No
  Sender: FDA-Public Use
  Company Number: US-ASTRAZENECA-2011SE11792

PATIENT
  Age: 66 Year
  Sex: Male

DRUGS (3)
  1. NEXIUM [Suspect]
     Route: 048
  2. TOPROL-XL [Suspect]
     Route: 048
  3. BLOOD PRESSURE MEDICATION [Concomitant]

REACTIONS (6)
  - DRY MOUTH [None]
  - PHARYNGITIS [None]
  - SINUSITIS [None]
  - DYSPEPSIA [None]
  - INTENTIONAL DRUG MISUSE [None]
  - ABDOMINAL DISCOMFORT [None]
